FAERS Safety Report 9512367 (Version 1)
Quarter: 2013Q3

REPORT INFORMATION
  Report Type: Spontaneous
  Country: US (occurrence: US)
  Receive Date: 20130910
  Receipt Date: 20130910
  Transmission Date: 20140515
  Serious: Yes (Other)
  Sender: FDA-Public Use
  Company Number: US-TEVA-431065USA

PATIENT
  Age: 26 Year
  Sex: Female
  Weight: 76.27 kg

DRUGS (1)
  1. PARAGARD 380A [Suspect]
     Route: 015
     Dates: start: 2011, end: 20130903

REACTIONS (6)
  - Device dislocation [Recovered/Resolved]
  - Vaginal infection [Unknown]
  - Dyspareunia [Unknown]
  - Abdominal pain [Unknown]
  - Feeling abnormal [Unknown]
  - Device expulsion [Unknown]
